FAERS Safety Report 11511270 (Version 9)
Quarter: 2016Q3

REPORT INFORMATION
  Report Type: Spontaneous
  Country: US (occurrence: US)
  Receive Date: 20150915
  Receipt Date: 20160708
  Transmission Date: 20161109
  Serious: Yes (Other)
  Sender: FDA-Public Use
  Company Number: US-TAKEDA-2015TUS012428

PATIENT
  Age: 53 Year
  Sex: Female
  Weight: 68.27 kg

DRUGS (24)
  1. ACTOS [Suspect]
     Active Substance: PIOGLITAZONE HYDROCHLORIDE
     Dosage: 15 MG, QD
     Route: 048
     Dates: start: 20140319, end: 20140319
  2. METFORMIN [Concomitant]
     Active Substance: METFORMIN HYDROCHLORIDE
     Indication: DIABETES MELLITUS
     Dosage: 850 MG, BID
     Route: 048
     Dates: start: 1998
  3. ZOLOFT [Concomitant]
     Active Substance: SERTRALINE HYDROCHLORIDE
     Dosage: 50 MG, QD
     Route: 048
  4. MOBIC [Concomitant]
     Active Substance: MELOXICAM
     Dosage: 15 MG, QD
     Route: 048
     Dates: start: 20130912
  5. ALBUTEROL SULFATE. [Concomitant]
     Active Substance: ALBUTEROL SULFATE
     Dosage: UNK, BID
     Route: 055
     Dates: start: 20130912
  6. LISINOPRIL. [Concomitant]
     Active Substance: LISINOPRIL
     Indication: PROPHYLAXIS
     Dosage: 5 MG, UNK
     Route: 048
     Dates: start: 2006
  7. VICODIN ES [Concomitant]
     Active Substance: ACETAMINOPHEN\HYDROCODONE BITARTRATE
     Indication: PAIN
     Dosage: UNK, TID
     Route: 048
  8. DICLOFENAC SODIUM. [Concomitant]
     Active Substance: DICLOFENAC SODIUM
     Dosage: 75 MG, BID
     Route: 048
  9. FLAGYL [Concomitant]
     Active Substance: METRONIDAZOLE\METRONIDAZOLE HYDROCHLORIDE
     Dosage: 500 MG, BID
     Route: 048
  10. ACTOS [Suspect]
     Active Substance: PIOGLITAZONE HYDROCHLORIDE
     Indication: TYPE 2 DIABETES MELLITUS
     Dosage: 30 MG, QD
     Route: 048
     Dates: start: 2009
  11. LOPID [Concomitant]
     Active Substance: GEMFIBROZIL
     Dosage: 600 MG, BID
     Route: 048
  12. GLIPIZIDE. [Concomitant]
     Active Substance: GLIPIZIDE
     Indication: DIABETES MELLITUS
     Dosage: 10 MG, BID
     Route: 048
     Dates: start: 1998
  13. SULFAMETHOXAZOLE AND TRIMETHOPRIM [Concomitant]
     Active Substance: SULFAMETHOXAZOLE\TRIMETHOPRIM
     Dosage: UNK, BID
     Route: 048
     Dates: start: 20140319
  14. GABAPENTIN. [Concomitant]
     Active Substance: GABAPENTIN
     Dosage: 800 MG, TID
     Route: 048
  15. CEPHAXIN [Concomitant]
  16. PIOGLITAZONE. [Suspect]
     Active Substance: PIOGLITAZONE
     Indication: TYPE 2 DIABETES MELLITUS
     Dosage: UNK, QD
     Route: 048
     Dates: start: 201402, end: 201408
  17. LISINOPRIL. [Concomitant]
     Active Substance: LISINOPRIL
     Dosage: 10 MG, QD
     Route: 048
  18. ASPIRIN                            /00002701/ [Concomitant]
     Active Substance: ASPIRIN
     Indication: CARDIOVASCULAR EVENT PROPHYLAXIS
     Dosage: 81 MG, QD
     Route: 048
     Dates: start: 1998
  19. NYSTATIN. [Concomitant]
     Active Substance: NYSTATIN
     Dosage: UNK, BID
     Route: 061
  20. ACTOS [Suspect]
     Active Substance: PIOGLITAZONE HYDROCHLORIDE
     Dosage: 15 MG, QD
     Route: 048
     Dates: start: 20130912, end: 20140319
  21. PROAIR HFA [Concomitant]
     Active Substance: ALBUTEROL SULFATE
     Indication: DYSPNOEA
     Dosage: 108 ?G, UNK
     Route: 055
  22. ULTRAM [Concomitant]
     Active Substance: TRAMADOL HYDROCHLORIDE
     Dosage: 50 MG, Q8HR
     Route: 048
     Dates: start: 20130912
  23. LOTRIMIN                           /00212501/ [Concomitant]
     Dosage: UNK, BID
     Route: 061
  24. BUFFERIN [Concomitant]
     Active Substance: ASPIRIN
     Dosage: 81 MG, QD
     Route: 048
     Dates: start: 20140319

REACTIONS (22)
  - Spinal fusion surgery [Unknown]
  - Asthma [Unknown]
  - Breast cyst [Unknown]
  - Trichomoniasis [Unknown]
  - Fungal infection [Not Recovered/Not Resolved]
  - Micturition disorder [Not Recovered/Not Resolved]
  - Vaginal infection [Unknown]
  - Abdominal discomfort [Not Recovered/Not Resolved]
  - Myalgia [Unknown]
  - Anxiety [Unknown]
  - Pain [Not Recovered/Not Resolved]
  - Myositis [Unknown]
  - Vulvovaginal discomfort [Not Recovered/Not Resolved]
  - Vulvovaginitis trichomonal [Unknown]
  - Carpal tunnel syndrome [Unknown]
  - Chromaturia [Not Recovered/Not Resolved]
  - Bladder neoplasm [Unknown]
  - Pollakiuria [Not Recovered/Not Resolved]
  - Bacterial vaginosis [Unknown]
  - Skin lesion [Unknown]
  - Essential hypertension [Unknown]
  - Bladder pain [Not Recovered/Not Resolved]

NARRATIVE: CASE EVENT DATE: 201412
